FAERS Safety Report 23480797 (Version 1)
Quarter: 2024Q1

REPORT INFORMATION
  Report Type: Spontaneous
  Country: ES (occurrence: ES)
  Receive Date: 20240205
  Receipt Date: 20240205
  Transmission Date: 20240410
  Serious: Yes (Other)
  Sender: FDA-Public Use
  Company Number: ES-ALKEM LABORATORIES LIMITED-ES-ALKEM-2023-14462

PATIENT
  Age: 9 Year
  Sex: Male

DRUGS (9)
  1. AZATHIOPRINE [Suspect]
     Active Substance: AZATHIOPRINE
     Indication: Colitis ulcerative
     Dosage: 1 MILLIGRAM/KILOGRAM/DAY
     Route: 048
  2. AZATHIOPRINE [Suspect]
     Active Substance: AZATHIOPRINE
     Dosage: 2 MILLIGRAM/KILOGRAM/DAY (DOSE INCREASED)
     Route: 065
  3. AZATHIOPRINE [Suspect]
     Active Substance: AZATHIOPRINE
     Dosage: 1 MILLIGRAM/KILOGRAM/DAY (DOSE REDUCED)
     Route: 065
  4. AZATHIOPRINE [Suspect]
     Active Substance: AZATHIOPRINE
     Dosage: 1.8 MILLIGRAM/KILOGRAM/DAY (DOSE REDUCED)
     Route: 065
  5. MESALAMINE [Suspect]
     Active Substance: MESALAMINE
     Indication: Colitis ulcerative
     Dosage: 75 MILLIGRAM/KILOGRAM/DAY, PRN (WHEN REQUIRED)
     Route: 048
  6. MESALAMINE [Suspect]
     Active Substance: MESALAMINE
     Dosage: 500 MG/DAY, PRN (WHEN REQUIRED) SUPPOSITORY
     Route: 054
  7. COTRIMOXAZOLE [Concomitant]
     Active Substance: SULFAMETHOXAZOLE\TRIMETHOPRIM
     Indication: Prophylaxis
     Dosage: UNK
     Route: 065
  8. METHYLPREDNISOLONE [Concomitant]
     Active Substance: METHYLPREDNISOLONE
     Indication: Colitis ulcerative
     Dosage: 1 MILLIGRAM/KILOGRAM/DAY
     Route: 048
  9. METHYLPREDNISOLONE [Concomitant]
     Active Substance: METHYLPREDNISOLONE
     Dosage: UNK (TAPERED DOSE)
     Route: 065

REACTIONS (3)
  - Hepatotoxicity [Recovering/Resolving]
  - Transaminases increased [Recovering/Resolving]
  - Drug ineffective [Unknown]
